FAERS Safety Report 15299502 (Version 4)
Quarter: 2019Q2

REPORT INFORMATION
  Report Type: Report from Study
  Country: JP (occurrence: JP)
  Receive Date: 20180821
  Receipt Date: 20190625
  Transmission Date: 20190711
  Serious: Yes (Other)
  Sender: FDA-Public Use
  Company Number: JP-UCBSA-2018035649

PATIENT
  Age: 41 Year
  Sex: Female
  Weight: 62.4 kg

DRUGS (17)
  1. LACOSAMIDE. [Suspect]
     Active Substance: LACOSAMIDE
     Dosage: 75 MILLIGRAM, 2X/DAY (BID)
     Route: 048
     Dates: start: 20180614, end: 20180718
  2. MAGMITT [Concomitant]
     Active Substance: MAGNESIUM OXIDE
     Indication: CONSTIPATION
     Dosage: 1000 MILLIGRAM, ONCE DAILY (QD)
     Route: 048
     Dates: end: 20180815
  3. MENOAID [Concomitant]
     Indication: PRODUCT USED FOR UNKNOWN INDICATION
     Dosage: UNK
     Route: 062
     Dates: start: 20180913, end: 20181003
  4. DOMPERIDONE [Concomitant]
     Active Substance: DOMPERIDONE
     Indication: GASTROINTESTINAL DISORDER
     Dosage: 10 MG, DAILY
     Route: 048
     Dates: end: 20190116
  5. EXCEGRAN [Concomitant]
     Active Substance: ZONISAMIDE
     Indication: PRODUCT USED FOR UNKNOWN INDICATION
     Dosage: 200 MILLIGRAM, ONCE DAILY (QD)
     Route: 048
     Dates: start: 20180913
  6. LACOSAMIDE. [Suspect]
     Active Substance: LACOSAMIDE
     Indication: PARTIAL SEIZURES WITH SECONDARY GENERALISATION
     Dosage: 50 MG, 2X/DAY (BID)
     Route: 048
     Dates: start: 20180306, end: 20180613
  7. OLMESARTAN MEDOXOMIL. [Concomitant]
     Active Substance: OLMESARTAN MEDOXOMIL
     Indication: HYPERTENSION
     Dosage: 20 MG, UNK
     Route: 048
     Dates: end: 20190327
  8. LACOSAMIDE. [Suspect]
     Active Substance: LACOSAMIDE
     Dosage: 50 MILLIGRAM, 2X/DAY (BID)
     Route: 048
     Dates: start: 20180719
  9. PLANOVAR [Concomitant]
     Active Substance: ETHINYL ESTRADIOL\NORGESTREL
     Indication: OVARIAN FAILURE
     Dosage: 1 TABLET DAILY
     Route: 048
     Dates: start: 20170614
  10. GLYCYRON [Concomitant]
     Indication: ALCOHOLIC LIVER DISEASE
     Dosage: 1 DF
     Route: 048
     Dates: end: 20180912
  11. GLYCYRON [Concomitant]
     Indication: HEPATIC STEATOSIS
     Dosage: 1 DF
     Route: 048
     Dates: start: 20180913
  12. ESTRANA [Suspect]
     Active Substance: ESTRADIOL
     Dosage: 0.72 MILLIGRAM, ONCE DAILY (QD)
     Route: 062
     Dates: start: 20180816, end: 20181003
  13. E KEPPRA [Concomitant]
     Active Substance: LEVETIRACETAM
     Indication: PARTIAL SEIZURES WITH SECONDARY GENERALISATION
     Dosage: 500 MG, UNK
     Route: 048
     Dates: start: 20171017, end: 20181108
  14. GASTER [Concomitant]
     Active Substance: FAMOTIDINE
     Indication: GASTROINTESTINAL DISORDER
     Dosage: 20 MILLIGRAM, ONCE DAILY (QD)
     Route: 048
  15. ESTRANA [Suspect]
     Active Substance: ESTRADIOL
     Indication: OVARIAN FAILURE
     Dosage: 0.72 MG DAILY
     Route: 062
     Dates: end: 20180613
  16. ASPARA POTASSIUM [Concomitant]
     Active Substance: POTASSIUM ASPARTATE
     Indication: PROPHYLAXIS
     Dosage: 600 MILLIGRAM, ONCE DAILY (QD)
     Route: 048
     Dates: start: 20160809
  17. BEZAFIBRATE [Concomitant]
     Active Substance: BEZAFIBRATE
     Indication: PRODUCT USED FOR UNKNOWN INDICATION

REACTIONS (1)
  - Gamma-glutamyltransferase abnormal [Recovering/Resolving]

NARRATIVE: CASE EVENT DATE: 20180315
